FAERS Safety Report 4978309-2 (Version None)
Quarter: 2006Q2

REPORT INFORMATION
  Report Type: 
  Country: None (occurrence: None)
  Receive Date: 20060417
  Receipt Date: 20060331
  Transmission Date: 20061013
  Serious: Yes (Hospitalization)
  Sender: FDA-Public Use
  Company Number: DSA_81584_2006

PATIENT
  Age: 59 Year
  Sex: Female
  Weight: 91.173 kg

DRUGS (1)
  1. XYREM [Suspect]
     Indication: INSOMNIA
     Dosage: 3 G TWICE NIGHTLY PO
     Route: 048
     Dates: start: 20050830

REACTIONS (4)
  - ALBUMIN URINE PRESENT [None]
  - BLOOD TRIGLYCERIDES INCREASED [None]
  - CREATINE URINE INCREASED [None]
  - PROTEIN URINE PRESENT [None]
